FAERS Safety Report 9313123 (Version 2)
Quarter: 2013Q3

REPORT INFORMATION
  Report Type: Spontaneous
  Country: None (occurrence: US)
  Receive Date: 20130528
  Receipt Date: 20130828
  Transmission Date: 20140515
  Serious: No
  Sender: FDA-Public Use
  Company Number: US-ABBOTT-13P-163-1072432-00

PATIENT
  Age: 50 Year
  Sex: Male
  Weight: 89.8 kg

DRUGS (7)
  1. ANDROGEL [Suspect]
     Indication: BLOOD TESTOSTERONE DECREASED
     Dosage: STICK PACK 2.5G, 2 PACKS DAILY
     Route: 061
     Dates: start: 201303
  2. ANDROGEL [Suspect]
     Dosage: 1 PACK DAILY
     Route: 061
     Dates: start: 201302, end: 201303
  3. CLONAZEPAM [Concomitant]
     Indication: ANXIETY
  4. CITALOPRAM [Concomitant]
     Indication: DEPRESSION
  5. TRAZODONE [Concomitant]
     Indication: INSOMNIA
  6. BUPROPION [Concomitant]
     Indication: DEPRESSION
  7. BUPRENORPHINE [Concomitant]
     Indication: PAIN MANAGEMENT

REACTIONS (4)
  - Blood testosterone decreased [Unknown]
  - Libido decreased [Not Recovered/Not Resolved]
  - Asthenia [Not Recovered/Not Resolved]
  - Malaise [Not Recovered/Not Resolved]
